FAERS Safety Report 7409734-8 (Version None)
Quarter: 2011Q2

REPORT INFORMATION
  Report Type: 
  Country: None (occurrence: None)
  Receive Date: 20110407
  Receipt Date: 20110407
  Transmission Date: 20111010
  Serious: Yes (Other)
  Sender: FDA-Public Use
  Company Number: None

PATIENT
  Age: 40 Year
  Sex: Male
  Weight: 102.0593 kg

DRUGS (1)
  1. PROVIGIL [Suspect]
     Dates: start: 20070607, end: 20080727

REACTIONS (7)
  - POST-TRAUMATIC STRESS DISORDER [None]
  - INSOMNIA [None]
  - ALCOHOLIC [None]
  - PARANOIA [None]
  - ANXIETY [None]
  - STRESS [None]
  - OFF LABEL USE [None]
